FAERS Safety Report 6208723-9 (Version None)
Quarter: 2009Q2

REPORT INFORMATION
  Report Type: 
  Country: None (occurrence: None)
  Receive Date: 20090522
  Receipt Date: 20090203
  Transmission Date: 20091009
  Serious: No
  Sender: FDA-Public Use
  Company Number: 8042409

PATIENT
  Age: 56 Year
  Sex: Male
  Weight: 88.6 kg

DRUGS (7)
  1. CIMZIA [Suspect]
     Indication: CROHN'S DISEASE
     Dosage: 400 MG SC
     Route: 058
     Dates: start: 20090112
  2. NEXIUM [Concomitant]
  3. IMODIUM MULTI-SYMPTOM RELIEF [Concomitant]
  4. CHOLESTYRAMINE [Concomitant]
  5. AZATHIOPRINE [Concomitant]
  6. VICODIN [Concomitant]
  7. PREDNISONE TAB [Concomitant]

REACTIONS (1)
  - INFLUENZA LIKE ILLNESS [None]
